FAERS Safety Report 7785443-0 (Version None)
Quarter: 2011Q3

REPORT INFORMATION
  Report Type: 
  Country: None (occurrence: None)
  Receive Date: 20110929
  Receipt Date: 20110920
  Transmission Date: 20111222
  Serious: Yes (Hospitalization, Other)
  Sender: FDA-Public Use
  Company Number: PHEH2011US02661

PATIENT
  Sex: Male
  Weight: 90 kg

DRUGS (8)
  1. CELEXA [Concomitant]
     Indication: DEPRESSION
     Dosage: 40 MG, DAILY
     Route: 048
     Dates: start: 20110301
  2. EXELON [Suspect]
     Dosage: 5 DF, (5 PATCHES OF 9.5 MG)
     Route: 062
     Dates: start: 20110812
  3. LASIX [Concomitant]
     Indication: POLYURIA
     Dosage: 40 MG, DAILY
     Route: 048
     Dates: start: 20101001
  4. EXELON [Suspect]
     Dosage: 6 DF, (6 PATCHES OF 9.5 MG)
     Route: 062
  5. XANAX [Concomitant]
     Indication: ANXIETY
     Dosage: 0.25 MG, BID
     Dates: start: 20110501
  6. EXELON [Suspect]
     Indication: DEMENTIA
     Dosage: 4.6 MG, UNK
     Route: 062
  7. EXELON [Suspect]
     Dosage: 9.5 MG, UNK
     Route: 062
     Dates: start: 20110708, end: 20110816
  8. BACTRIM DS [Concomitant]
     Indication: URINARY TRACT INFECTION
     Dosage: UNK UKN, DAILY
     Route: 048
     Dates: start: 20100801

REACTIONS (6)
  - MALAISE [None]
  - URINARY TRACT INFECTION [None]
  - NAUSEA [None]
  - OVERDOSE [None]
  - VOMITING [None]
  - WRONG TECHNIQUE IN DRUG USAGE PROCESS [None]
